FAERS Safety Report 18435134 (Version 2)
Quarter: 2021Q1

REPORT INFORMATION
  Report Type: Spontaneous
  Country: US (occurrence: US)
  Receive Date: 20201027
  Receipt Date: 20210315
  Transmission Date: 20210419
  Serious: No
  Sender: FDA-Public Use
  Company Number: US-009507513-2010USA010460

PATIENT
  Age: 64 Year
  Weight: 90.1 kg

DRUGS (1)
  1. REBETOL [Suspect]
     Active Substance: RIBAVIRIN
     Indication: RESPIRATORY SYNCYTIAL VIRUS INFECTION
     Dosage: 600 MG THREE TIMES DAILY
     Route: 048

REACTIONS (1)
  - Off label use [Unknown]
